FAERS Safety Report 18955712 (Version 1)
Quarter: 2021Q1

REPORT INFORMATION
  Report Type: Spontaneous
  Country: US (occurrence: US)
  Receive Date: 20210301
  Receipt Date: 20210301
  Transmission Date: 20210420
  Serious: Yes (Other)
  Sender: FDA-Public Use
  Company Number: US-PFIZER INC-2021183896

PATIENT
  Age: 67 Year
  Sex: Female

DRUGS (13)
  1. CYCLOBENZAPRINE. [Concomitant]
     Active Substance: CYCLOBENZAPRINE
     Dosage: 10 MG
  2. DICYCLOMINE [Concomitant]
     Active Substance: DICYCLOMINE HYDROCHLORIDE
     Dosage: 10 MG
  3. SUCRALFATE. [Concomitant]
     Active Substance: SUCRALFATE
     Dosage: 1 G
  4. METHOTREXATE. [Concomitant]
     Active Substance: METHOTREXATE
     Dosage: 50 MG/2 ML VIAL
  5. METOPROLOL SUCCINATE. [Concomitant]
     Active Substance: METOPROLOL SUCCINATE
     Dosage: 25 MG
  6. OMEPRAZOLE AND SODIUM BICARBONATE [Concomitant]
     Active Substance: OMEPRAZOLE\SODIUM BICARBONATE
     Dosage: UNK
  7. XELJANZ XR [Suspect]
     Active Substance: TOFACITINIB CITRATE
     Indication: RHEUMATOID ARTHRITIS
     Dosage: 11 MG, DAILY
     Route: 048
     Dates: start: 2020, end: 202101
  8. VITAMIN D3 [Concomitant]
     Active Substance: CHOLECALCIFEROL
     Dosage: 1000 IU
  9. SERTRALINE HCL [Concomitant]
     Active Substance: SERTRALINE HYDROCHLORIDE
     Dosage: 50 MG
  10. PHENYTOIN SOD. [Concomitant]
     Dosage: 100 MG
  11. SIMVASTATIN. [Concomitant]
     Active Substance: SIMVASTATIN
     Dosage: 40 MG
  12. ESTRADIOL. [Concomitant]
     Active Substance: ESTRADIOL
     Dosage: 2 MG
  13. LISINOPRIL. [Concomitant]
     Active Substance: LISINOPRIL
     Dosage: 5 MG

REACTIONS (4)
  - Pain [Unknown]
  - Tendon rupture [Unknown]
  - Rheumatoid arthritis [Unknown]
  - Rotator cuff syndrome [Unknown]
